FAERS Safety Report 18879945 (Version 2)
Quarter: 2021Q1

REPORT INFORMATION
  Report Type: Spontaneous
  Country: US (occurrence: US)
  Receive Date: 20210211
  Receipt Date: 20210308
  Transmission Date: 20210420
  Serious: Yes (Hospitalization, Other)
  Sender: FDA-Public Use
  Company Number: US-JAZZ-2021-US-002274

PATIENT
  Age: 19 Year
  Sex: Female

DRUGS (2)
  1. XYREM [Suspect]
     Active Substance: SODIUM OXYBATE
     Indication: PRODUCT USED FOR UNKNOWN INDICATION
     Dosage: UNKNOWN DOSE AND UNKNOWN FREQUENCY
     Route: 048
  2. LISDEXAMFETAMINE [Suspect]
     Active Substance: LISDEXAMFETAMINE
     Indication: PRODUCT USED FOR UNKNOWN INDICATION

REACTIONS (9)
  - Miosis [Recovering/Resolving]
  - Suicide attempt [Unknown]
  - Blood pressure decreased [Recovering/Resolving]
  - Depressed level of consciousness [Recovering/Resolving]
  - Agitation [Recovering/Resolving]
  - Respiratory disorder [Recovering/Resolving]
  - X-ray abnormal [Recovering/Resolving]
  - Unresponsive to stimuli [Recovering/Resolving]
  - Pneumonitis [Recovering/Resolving]
